FAERS Safety Report 10071095 (Version 8)
Quarter: 2015Q3

REPORT INFORMATION
  Report Type: Spontaneous
  Country: US (occurrence: US)
  Receive Date: 20140410
  Receipt Date: 20150720
  Transmission Date: 20151125
  Serious: Yes (Hospitalization, Disabling, Other)
  Sender: FDA-Public Use
  Company Number: US-009507513-1404USA001658

PATIENT
  Sex: Female

DRUGS (5)
  1. FOSAMAX [Suspect]
     Active Substance: ALENDRONATE SODIUM
     Dosage: 70 MG, QW
     Route: 048
     Dates: start: 20010201, end: 20050302
  2. FOSAMAX [Suspect]
     Active Substance: ALENDRONATE SODIUM
     Dosage: 70 MG, QW
     Route: 048
     Dates: start: 200607, end: 200810
  3. ALENDRONATE SODIUM. [Suspect]
     Active Substance: ALENDRONATE SODIUM
     Indication: OSTEOPOROSIS
     Dosage: 70 MG, QW
     Route: 048
     Dates: start: 200911, end: 2010
  4. FOSAMAX PLUS D [Suspect]
     Active Substance: ALENDRONATE SODIUM\CHOLECALCIFEROL
     Indication: OSTEOPOROSIS
     Dosage: 70 MG, QW
     Route: 048
     Dates: start: 20060128, end: 20060620
  5. FOSAMAX [Suspect]
     Active Substance: ALENDRONATE SODIUM
     Indication: OSTEOPOROSIS
     Dosage: 10 MG, QD
     Route: 048
     Dates: start: 1997, end: 20001223

REACTIONS (45)
  - Rib fracture [Unknown]
  - Cholecystectomy [Unknown]
  - Osteoarthritis [Unknown]
  - Cushing^s syndrome [Unknown]
  - Angiopathy [Unknown]
  - Dyspepsia [Unknown]
  - Pain [Not Recovered/Not Resolved]
  - Osteopenia [Unknown]
  - Anaemia of chronic disease [Not Recovered/Not Resolved]
  - Microcytic anaemia [Unknown]
  - Spinal osteoarthritis [Unknown]
  - Humerus fracture [Unknown]
  - Restlessness [Unknown]
  - Fracture treatment [Unknown]
  - Spinal compression fracture [Unknown]
  - Kyphosis [Unknown]
  - Vascular calcification [Unknown]
  - Hypophagia [Unknown]
  - Bone marrow failure [Unknown]
  - Spinal compression fracture [Unknown]
  - Aortic disorder [Unknown]
  - Haematocrit decreased [Unknown]
  - Lumbar spinal stenosis [Unknown]
  - Helicobacter infection [Unknown]
  - Muscle spasms [Unknown]
  - Dementia [Unknown]
  - Hip arthroplasty [Unknown]
  - Delirium [Unknown]
  - Anxiety [Unknown]
  - Rib fracture [Recovering/Resolving]
  - Spinal compression fracture [Unknown]
  - Tuberculin test positive [Unknown]
  - Femur fracture [Unknown]
  - Major depression [Not Recovered/Not Resolved]
  - Dry mouth [Unknown]
  - Iodine allergy [Unknown]
  - Peptic ulcer [Unknown]
  - Weight decreased [Unknown]
  - Lumbar vertebral fracture [Unknown]
  - Osteitis deformans [Unknown]
  - Neoplasm malignant [Unknown]
  - Hypertension [Unknown]
  - Appendix disorder [Unknown]
  - Rheumatoid arthritis [Unknown]
  - Rash [Unknown]

NARRATIVE: CASE EVENT DATE: 199708
